FAERS Safety Report 7545153 (Version 5)
Quarter: 2013Q3

REPORT INFORMATION
  Report Type: Report from Study
  Country: CA (occurrence: CA)
  Receive Date: 20100818
  Receipt Date: 20130723
  Transmission Date: 20140515
  Serious: Yes (Hospitalization, Other)
  Sender: FDA-Public Use
  Company Number: PHHY2010CA51100

PATIENT
  Age: 81 Year
  Sex: Female
  Weight: 51 kg

DRUGS (19)
  1. ACLASTA/ZOLEDRONATE [Suspect]
     Indication: OSTEOPOROSIS
     Dosage: 5 MG, ONCE PER YEAR
     Route: 042
     Dates: start: 20090730
  2. ACLASTA/ZOLEDRONATE [Suspect]
     Dosage: ONCE PER YEAR
     Route: 042
  3. ACLASTA/ZOLEDRONATE [Suspect]
     Dosage: ONCE PER YEAR
     Route: 042
  4. ACLASTA/ZOLEDRONATE [Suspect]
     Dosage: ONCE PER YEAR
     Route: 042
  5. ACLASTA/ZOLEDRONATE [Suspect]
     Dosage: ONCE PER YEAR
     Route: 042
     Dates: start: 201307
  6. LEVOCORT                           /00415201/ [Concomitant]
     Dosage: UNK UKN, UNK
  7. CALCIUM [Concomitant]
     Dosage: 500 UKN, BID
     Dates: start: 20070517
  8. VITAMIN D [Concomitant]
     Dosage: 400 UKN, BID
     Dates: start: 20070517
  9. VITAMIN D [Concomitant]
     Dosage: 10000 IU, QW
  10. RISEDRONIC ACID [Concomitant]
     Dosage: 35 MG, UNK
     Dates: start: 20071122, end: 200908
  11. FOSAMAX [Concomitant]
     Dosage: UNK UKN, UNK
  12. DIDROCAL [Concomitant]
     Dosage: 400 MG, UNK
  13. EVISTA [Concomitant]
     Dosage: 670 MG, UNK
  14. MIACALCIN [Concomitant]
     Dosage: 200 UKN, UNK
  15. FORTEO [Concomitant]
     Dosage: 20 MG, UNK
  16. HORMONES [Concomitant]
     Dosage: UNK UKN, UNK
  17. BISOPROLOL [Concomitant]
     Dosage: 2.5 MG, UNK
  18. LEVOCARB [Concomitant]
     Dosage: 1.5 DF, TID
  19. AMLODIPINE [Concomitant]
     Dosage: 2.5 MG, UNK

REACTIONS (4)
  - Arrhythmia [Unknown]
  - Radius fracture [Recovered/Resolved]
  - Atrial fibrillation [Recovered/Resolved]
  - Drug ineffective [Unknown]
